FAERS Safety Report 4562793-2 (Version None)
Quarter: 2005Q1

REPORT INFORMATION
  Report Type: 
  Country: None (occurrence: None)
  Receive Date: 20050124
  Receipt Date: 20050114
  Transmission Date: 20050727
  Serious: Yes (Death, Hospitalization)
  Sender: FDA-Public Use
  Company Number: SHC-2002-006366

PATIENT
  Age: 62 Year
  Sex: Female
  Weight: 83 kg

DRUGS (1)
  1. CLIMARA [Suspect]
     Indication: HORMONE REPLACEMENT THERAPY
     Dosage: 45 MCG E2/D + 30 MCG LNG/D, TRANSDERMAL
     Route: 062
     Dates: start: 20000710, end: 20020726

REACTIONS (25)
  - AORTIC ATHEROSCLEROSIS [None]
  - B-CELL LYMPHOMA [None]
  - BREAST CANCER [None]
  - BRONCHOPNEUMONIA [None]
  - CENTRAL NERVOUS SYSTEM LYMPHOMA [None]
  - CEREBROVASCULAR ACCIDENT [None]
  - CORONARY ARTERY ATHEROSCLEROSIS [None]
  - DEPRESSED LEVEL OF CONSCIOUSNESS [None]
  - DRUG TOXICITY [None]
  - ENCEPHALITIS [None]
  - ENCEPHALITIS VIRAL [None]
  - GENERAL PHYSICAL HEALTH DETERIORATION [None]
  - HEPATIC CONGESTION [None]
  - HEPATIC STEATOSIS [None]
  - INFECTION [None]
  - LEUKOENCEPHALOPATHY [None]
  - MENINGITIS LISTERIA [None]
  - METASTASES TO CENTRAL NERVOUS SYSTEM [None]
  - MYOCARDIAL FIBROSIS [None]
  - NEPHROSCLEROSIS [None]
  - PNEUMONIA ASPIRATION [None]
  - PULMONARY OEDEMA [None]
  - RENAL TUBULAR NECROSIS [None]
  - SPLEEN CONGESTION [None]
  - VASCULITIS CEREBRAL [None]
